FAERS Safety Report 7936011-9 (Version None)
Quarter: 2011Q4

REPORT INFORMATION
  Report Type: 
  Country: None (occurrence: None)
  Receive Date: 20111121
  Receipt Date: 20111104
  Transmission Date: 20120403
  Serious: Yes (Disabling)
  Sender: FDA-Public Use
  Company Number: 1000025261

PATIENT
  Age: 75 Year
  Sex: Female
  Weight: 63.5 kg

DRUGS (8)
  1. CITALOPRAM (CITALOPRAM HYDROBROMIDE) (CITALOPRAM HYDROBROMIDE) [Concomitant]
  2. PARACETAMOL (PARACETAMOL) (PARACETAMOL) [Concomitant]
  3. METFORMIN HCL [Concomitant]
  4. MEMANTINE HYDROCHLORIDE [Suspect]
     Indication: DEMENTIA ALZHEIMER'S TYPE
     Dosage: 5 MG (5 MG, 1 IN 1 D), ORAL
     Route: 048
     Dates: start: 20110815, end: 20110821
  5. CO-TENIDONE (ATENOLOL, CHLORTHALIDONE) (ATENOLOL, CHLORTHALIDONE) [Concomitant]
  6. QUETIAPINE (QUETIAPINE) (QUETIAPINE) [Concomitant]
  7. MEMANTINE HYDROCHLORIDE [Suspect]
     Indication: DEMENTIA ALZHEIMER'S TYPE
     Dosage: 10 MG (10 MG, 1 IN 1 D), ORAL
     Route: 048
     Dates: start: 20110822, end: 20110826
  8. SIMVASTATIN [Concomitant]

REACTIONS (6)
  - CONFUSIONAL STATE [None]
  - CONDITION AGGRAVATED [None]
  - HYPERSOMNIA [None]
  - MOBILITY DECREASED [None]
  - AGGRESSION [None]
  - URINARY INCONTINENCE [None]
